FAERS Safety Report 12353499 (Version 1)
Quarter: 2016Q2

REPORT INFORMATION
  Report Type: Report from Study
  Country: CN (occurrence: CN)
  Receive Date: 20160511
  Receipt Date: 20160511
  Transmission Date: 20160815
  Serious: Yes (Death, Life-Threatening)
  Sender: FDA-Public Use
  Company Number: CN-ROCHE-1755382

PATIENT
  Sex: Male
  Weight: 34.05 kg

DRUGS (1)
  1. AVASTIN [Suspect]
     Active Substance: BEVACIZUMAB
     Indication: NON-SMALL CELL LUNG CANCER
     Route: 041
     Dates: start: 20150806

REACTIONS (3)
  - Paralysis [Not Recovered/Not Resolved]
  - Pneumonia [Fatal]
  - Lung infection [Fatal]
